FAERS Safety Report 6005508-3 (Version None)
Quarter: 2008Q4

REPORT INFORMATION
  Report Type: 
  Country: None (occurrence: None)
  Receive Date: 20081217
  Receipt Date: 20080820
  Transmission Date: 20090506
  Serious: No
  Sender: FDA-Public Use
  Company Number: A0743553A

PATIENT
  Sex: Male

DRUGS (9)
  1. LEXIVA [Suspect]
     Indication: HIV INFECTION
     Dosage: 2TAB TWICE PER DAY
     Route: 048
  2. TRUVADA [Concomitant]
  3. ZIDOVUDINE [Concomitant]
  4. ASPIRIN [Concomitant]
  5. WARFARIN SODIUM [Concomitant]
  6. METOPROLOL SUCCINATE [Concomitant]
  7. LISINOPRIL [Concomitant]
  8. BACTRIM DS [Concomitant]
  9. CELEXA [Concomitant]

REACTIONS (1)
  - DIARRHOEA [None]
